FAERS Safety Report 9209554 (Version 1)
Quarter: 2013Q2

REPORT INFORMATION
  Report Type: Spontaneous
  Country: US (occurrence: US)
  Receive Date: 20130404
  Receipt Date: 20130404
  Transmission Date: 20140414
  Serious: Yes (Death)
  Sender: FDA-Public Use
  Company Number: US-SANOFI-AVENTIS-2013SA034543

PATIENT
  Age: 74 Year
  Sex: Female

DRUGS (3)
  1. ALLEGRA-D [Suspect]
     Route: 048
  2. ALLEGRA-D [Suspect]
  3. CORTICOSTEROID NOS [Suspect]

REACTIONS (4)
  - Gallbladder cancer [Fatal]
  - Hepatic cancer [Fatal]
  - Pancreatic carcinoma [Fatal]
  - Addison^s disease [Unknown]
